FAERS Safety Report 15918962 (Version 2)
Quarter: 2019Q2

REPORT INFORMATION
  Report Type: Spontaneous
  Country: FR (occurrence: FR)
  Receive Date: 20190205
  Receipt Date: 20190411
  Transmission Date: 20190711
  Serious: Yes (Other)
  Sender: FDA-Public Use
  Company Number: FR-MYLANLABS-2019M1009830

PATIENT
  Age: 55 Year
  Sex: Male
  Weight: 100 kg

DRUGS (2)
  1. TERBINAFINE MYLAN 250 MG,COMPRIM? S?CABLE [Suspect]
     Active Substance: TERBINAFINE
     Dosage: 1 DOSAGE FORM, QD
     Route: 048
     Dates: start: 201901
  2. TERBINAFINE MYLAN 250 MG,COMPRIM? S?CABLE [Suspect]
     Active Substance: TERBINAFINE
     Indication: ONYCHOMYCOSIS
     Dosage: UNK

REACTIONS (3)
  - Skin plaque [Recovered/Resolved]
  - Toxic skin eruption [Recovered/Resolved]
  - Rash [Recovered/Resolved]

NARRATIVE: CASE EVENT DATE: 2019
